FAERS Safety Report 8762967 (Version 2)
Quarter: 2013Q1

REPORT INFORMATION
  Report Type: Spontaneous
  Country: US (occurrence: None)
  Receive Date: 20120824
  Receipt Date: 20121120
  Transmission Date: 20140127
  Serious: Yes (Hospitalization)
  Sender: FDA-Public Use
  Company Number: DKLU1083989

PATIENT
  Age: 2 Year
  Sex: Male

DRUGS (5)
  1. SABRIL [Suspect]
     Indication: INFANTILE SPASMS
     Route: 048
  2. ONFI [Concomitant]
  3. TRILEPTAL(OXCARBAZEPINE) [Concomitant]
  4. KEPPRA(LEVETIRACETAM) [Concomitant]
  5. ZONISAMIDE(ZONISAMIDE) [Concomitant]

REACTIONS (2)
  - Respiratory arrest [None]
  - Skin discolouration [None]
